FAERS Safety Report 25842152 (Version 1)
Quarter: 2025Q3

REPORT INFORMATION
  Report Type: Spontaneous
  Country: US (occurrence: US)
  Receive Date: 20250924
  Receipt Date: 20250924
  Transmission Date: 20251020
  Serious: Yes (Other)
  Sender: MDD OPERATIONS
  Company Number: US-SUP-SUP202509-003704

PATIENT
  Age: 70 Year
  Sex: Male

DRUGS (1)
  1. QELBREE [Suspect]
     Active Substance: VILOXAZINE HYDROCHLORIDE
     Indication: Product used for unknown indication
     Dosage: 200MG AT BEDTIME PATIENT TOOK QELBREE FOR 2 DAYS ONLY
     Dates: start: 20250513, end: 20250514

REACTIONS (16)
  - Coronary arterial stent insertion [Unknown]
  - Neuropathy peripheral [Unknown]
  - General physical health deterioration [Unknown]
  - Asthenia [Unknown]
  - Thyroxine decreased [Unknown]
  - Renal function test abnormal [Unknown]
  - Dyspnoea [Unknown]
  - Anogenital lichen planus [Unknown]
  - Morton^s neuralgia [Unknown]
  - Condition aggravated [Unknown]
  - Carpal tunnel syndrome [Unknown]
  - Somnolence [Unknown]
  - Fatigue [Unknown]
  - Lethargy [Unknown]
  - Depression [Unknown]
  - Anger [Unknown]

NARRATIVE: CASE EVENT DATE: 20250514
